FAERS Safety Report 12785071 (Version 2)
Quarter: 2016Q4

REPORT INFORMATION
  Report Type: Spontaneous
  Country: US (occurrence: US)
  Receive Date: 20160927
  Receipt Date: 20161003
  Transmission Date: 20170207
  Serious: Yes (Hospitalization)
  Sender: FDA-Public Use
  Company Number: US-PFIZER INC-2016443780

PATIENT
  Age: 88 Year
  Sex: Male
  Weight: 59 kg

DRUGS (12)
  1. LASIX [Suspect]
     Active Substance: FUROSEMIDE
     Dosage: 40 UNK, UNK
  2. RAMIPRIL. [Suspect]
     Active Substance: RAMIPRIL
     Dosage: 5 DF, 1X/DAY
  3. PRADAXA [Suspect]
     Active Substance: DABIGATRAN ETEXILATE MESYLATE
     Dosage: 1 DF, 2X/DAY
  4. ASA [Suspect]
     Active Substance: ASPIRIN
     Dosage: UNK UNK, 1X/DAY
  5. SYMBICORT [Concomitant]
     Active Substance: BUDESONIDE\FORMOTEROL FUMARATE DIHYDRATE
     Dosage: UNK
  6. LEVOTHYROXINE. [Concomitant]
     Active Substance: LEVOTHYROXINE
     Dosage: UNK
  7. AMIODARONE [Concomitant]
     Active Substance: AMIODARONE
     Dosage: UNK
  8. CRESTOR [Concomitant]
     Active Substance: ROSUVASTATIN CALCIUM
     Dosage: UNK
  9. LEVOTHROID [Concomitant]
     Active Substance: LEVOTHYROXINE SODIUM
  10. COREG [Suspect]
     Active Substance: CARVEDILOL
     Dosage: 1 DF, 2X/DAY
  11. PRILOSEC [Concomitant]
     Active Substance: OMEPRAZOLE MAGNESIUM
     Dosage: UNK
  12. PLAVIX [Suspect]
     Active Substance: CLOPIDOGREL BISULFATE
     Dosage: UNK, 1X/DAY

REACTIONS (11)
  - Cardiac failure congestive [Unknown]
  - Faeces discoloured [Unknown]
  - Oedema [Unknown]
  - Asthenia [Unknown]
  - Amyloidosis [Unknown]
  - Cough [Unknown]
  - Exercise tolerance decreased [Unknown]
  - Dyspnoea [Unknown]
  - Polyuria [Unknown]
  - Cardiac amyloidosis [Unknown]
  - Coronary artery disease [Unknown]
